FAERS Safety Report 4399691-3 (Version None)
Quarter: 2004Q3

REPORT INFORMATION
  Report Type: 
  Country: None (occurrence: None)
  Receive Date: 20040716
  Receipt Date: 20040712
  Transmission Date: 20050211
  Serious: Yes (Life-Threatening, Hospitalization)
  Sender: FDA-Public Use
  Company Number: CY-ROCHE-374034

PATIENT
  Age: 42 Year
  Sex: Female
  Weight: 114 kg

DRUGS (3)
  1. XENICAL [Suspect]
     Indication: OBESITY
     Route: 048
     Dates: start: 20030414, end: 20040615
  2. PROZAC [Concomitant]
     Indication: DEPRESSION
     Route: 048
     Dates: start: 20040414, end: 20040615
  3. ACETAMINOPHEN [Concomitant]

REACTIONS (3)
  - CHOLESTASIS [None]
  - CYTOMEGALOVIRUS ANTIBODY POSITIVE [None]
  - HEPATITIS [None]
